FAERS Safety Report 13139562 (Version 1)
Quarter: 2017Q1

REPORT INFORMATION
  Report Type: Spontaneous
  Country: US (occurrence: US)
  Receive Date: 20170123
  Receipt Date: 20170123
  Transmission Date: 20170428
  Serious: No
  Sender: FDA-Public Use
  Company Number: US-REGENERON PHARMACEUTICALS, INC.-2016-17862

PATIENT

DRUGS (3)
  1. AVASTIN [Suspect]
     Active Substance: BEVACIZUMAB
     Indication: MACULAR OEDEMA
     Dosage: UNK, BOTH EYES
     Route: 031
  2. AVASTIN [Suspect]
     Active Substance: BEVACIZUMAB
     Dosage: UNK, SINGLE, LEFT EYE
     Route: 031
     Dates: start: 20160524, end: 20160524
  3. EYLEA [Suspect]
     Active Substance: AFLIBERCEPT
     Indication: MACULAR OEDEMA
     Dosage: 2 MG MILLIGRAM(S), BOTH EYES
     Dates: start: 20160407, end: 20160407

REACTIONS (1)
  - Visual acuity reduced [Unknown]

NARRATIVE: CASE EVENT DATE: 20160531
